FAERS Safety Report 14881861 (Version 12)
Quarter: 2019Q1

REPORT INFORMATION
  Report Type: Spontaneous
  Country: IN (occurrence: IN)
  Receive Date: 20180511
  Receipt Date: 20190123
  Transmission Date: 20190417
  Serious: Yes (Other)
  Sender: FDA-Public Use
  Company Number: IN-PFIZER INC-2018191089

PATIENT
  Age: 26 Year
  Sex: Male

DRUGS (2)
  1. CHAMPIX [Suspect]
     Active Substance: VARENICLINE TARTRATE
     Indication: SMOKING CESSATION THERAPY
     Dosage: 0.5 MG, 1X/DAY
     Route: 048
     Dates: start: 20180505, end: 201805
  2. CHAMPIX [Suspect]
     Active Substance: VARENICLINE TARTRATE
     Dosage: 0.5 MG, 2X/DAY
     Route: 048
     Dates: start: 201805, end: 201805

REACTIONS (11)
  - Irritability [Recovering/Resolving]
  - Asthma [Unknown]
  - Erythema [Recovered/Resolved]
  - Rash generalised [Unknown]
  - Disease recurrence [Unknown]
  - Abnormal dreams [Recovered/Resolved]
  - Product dose omission [Unknown]
  - Schizophrenia [Unknown]
  - Depression [Unknown]
  - Tobacco user [Recovered/Resolved]
  - Chills [Recovering/Resolving]

NARRATIVE: CASE EVENT DATE: 2018
